FAERS Safety Report 25444997 (Version 1)
Quarter: 2025Q2

REPORT INFORMATION
  Report Type: Spontaneous
  Country: MA (occurrence: MA)
  Receive Date: 20250617
  Receipt Date: 20250617
  Transmission Date: 20250716
  Serious: Yes (Other)
  Sender: RANBAXY
  Company Number: MA-SUN PHARMACEUTICAL INDUSTRIES INC-2025RR-512574

PATIENT
  Age: 50 Year
  Sex: Female

DRUGS (1)
  1. ERLOTINIB [Suspect]
     Active Substance: ERLOTINIB
     Indication: Lung neoplasm malignant
     Dosage: 150 MILLIGRAM, DAILY
     Route: 065

REACTIONS (2)
  - Trichomegaly [Unknown]
  - Rash pustular [Recovering/Resolving]
